FAERS Safety Report 7945324-6 (Version None)
Quarter: 2011Q4

REPORT INFORMATION
  Report Type: 
  Country: None (occurrence: None)
  Receive Date: 20111129
  Receipt Date: 20110222
  Transmission Date: 20120403
  Serious: No
  Sender: FDA-Public Use
  Company Number: US-GLAXOSMITHKLINE-A0914886A

PATIENT
  Age: 30 Year
  Sex: Female

DRUGS (3)
  1. WELLBUTRIN SR [Suspect]
     Indication: DEPRESSION
     Dosage: 150MG TWICE PER DAY
     Route: 048
     Dates: start: 20110201, end: 20110216
  2. ORTHO TRI-CYCLEN [Concomitant]
  3. SEROQUEL [Concomitant]

REACTIONS (3)
  - THINKING ABNORMAL [None]
  - MOOD SWINGS [None]
  - HEADACHE [None]
